FAERS Safety Report 24404530 (Version 1)
Quarter: 2024Q4

REPORT INFORMATION
  Report Type: Spontaneous
  Country: US (occurrence: None)
  Receive Date: 20241004
  Receipt Date: 20241004
  Transmission Date: 20250114
  Serious: Yes (Hospitalization)
  Sender: Public
  Company Number: None

PATIENT
  Sex: Female

DRUGS (9)
  1. SILDENAFIL CITRATE [Suspect]
     Active Substance: SILDENAFIL CITRATE
     Indication: Pulmonary arterial hypertension
     Dosage: FREQUENCY : 3 TIMES A DAY;?
     Route: 048
  2. SODIUM CHLORIDE [Concomitant]
     Active Substance: SODIUM CHLORIDE
  3. pump remunity starter kit [Concomitant]
  4. c-formulation d w/cloni [Concomitant]
  5. remunity cart w/fill aid [Concomitant]
  6. DEVICE [Concomitant]
     Active Substance: DEVICE
  7. REMODULIN [Concomitant]
     Active Substance: TREPROSTINIL
  8. lidocaine/prilocaine crm [Concomitant]
  9. AMBRISENTAN [Concomitant]
     Active Substance: AMBRISENTAN

REACTIONS (1)
  - Hospitalisation [None]
